FAERS Safety Report 9034262 (Version 1)
Quarter: 2013Q1

REPORT INFORMATION
  Report Type: Spontaneous
  Country: US (occurrence: US)
  Receive Date: 20130128
  Receipt Date: 20130128
  Transmission Date: 20140127
  Serious: Yes (Other)
  Sender: FDA-Public Use
  Company Number: US-AMGEN-KDL097369

PATIENT
  Age: 74 Year
  Sex: Female

DRUGS (3)
  1. ENBREL [Suspect]
     Indication: RHEUMATOID ARTHRITIS
     Dosage: 25 MG, 2 TIMES/WK
     Route: 058
     Dates: start: 19980101
  2. METHOTREXATE [Concomitant]
     Dosage: 7.5 MG, UNK
     Dates: start: 199806, end: 20041027
  3. PREDNISONE [Concomitant]
     Dosage: 2.5 MG, UNK
     Dates: start: 199806

REACTIONS (1)
  - Herpes zoster [Unknown]
